FAERS Safety Report 5916598-8 (Version None)
Quarter: 2008Q4

REPORT INFORMATION
  Report Type: 
  Country: None (occurrence: None)
  Receive Date: 20081013
  Receipt Date: 20081006
  Transmission Date: 20090506
  Serious: Yes (Life-Threatening, Hospitalization)
  Sender: FDA-Public Use
  Company Number: FR-MERCK-0809FRA00082

PATIENT
  Age: 68 Year
  Sex: Male

DRUGS (2)
  1. COSOPT [Suspect]
     Indication: GLAUCOMA
     Route: 048
     Dates: start: 20050101, end: 20080829
  2. LATANOPROST [Concomitant]
     Indication: GLAUCOMA
     Route: 047
     Dates: start: 20030101

REACTIONS (4)
  - ANGIOEDEMA [None]
  - CARDIAC ARREST [None]
  - CARDIOGENIC SHOCK [None]
  - MYOCARDIAL INFARCTION [None]
